FAERS Safety Report 7325441-4 (Version None)
Quarter: 2011Q1

REPORT INFORMATION
  Report Type: 
  Country: None (occurrence: None)
  Receive Date: 20110302
  Receipt Date: 20110222
  Transmission Date: 20110831
  Serious: Yes (Other)
  Sender: FDA-Public Use
  Company Number: DE-JNJFOC-20110207158

PATIENT
  Sex: Female

DRUGS (2)
  1. DOLORMIN MIGRANE ZAPFCHEN [Suspect]
     Indication: NASOPHARYNGITIS
     Route: 054
  2. DOLORMIN MIGRANE ZAPFCHEN [Suspect]
     Indication: HEADACHE
     Route: 054

REACTIONS (3)
  - PROCTALGIA [None]
  - CIRCULATORY COLLAPSE [None]
  - PAINFUL DEFAECATION [None]
